FAERS Safety Report 5159921-7 (Version None)
Quarter: 2006Q4

REPORT INFORMATION
  Report Type: 
  Country: None (occurrence: None)
  Receive Date: 20061129
  Receipt Date: 20061121
  Transmission Date: 20070319
  Serious: Yes (Other)
  Sender: FDA-Public Use
  Company Number: GB-ROCHE-472430

PATIENT
  Sex: Male

DRUGS (3)
  1. RIVOTRIL [Suspect]
     Indication: EPILEPSY
     Route: 065
  2. PHENOBARBITAL TAB [Concomitant]
  3. PHENYTOIN SODIUM CAP [Concomitant]

REACTIONS (1)
  - DUODENAL OBSTRUCTION [None]
